FAERS Safety Report 23871784 (Version 1)
Quarter: 2024Q2

REPORT INFORMATION
  Report Type: Spontaneous
  Country: IL (occurrence: IL)
  Receive Date: 20240520
  Receipt Date: 20240520
  Transmission Date: 20240715
  Serious: Yes (Death, Other)
  Sender: FDA-Public Use
  Company Number: IL-JAZZ PHARMACEUTICALS-2024-IL-006174

PATIENT
  Age: 77 Year
  Sex: Male

DRUGS (1)
  1. VYXEOS [Suspect]
     Active Substance: CYTARABINE\DAUNORUBICIN
     Indication: Leukaemia
     Dosage: UNK
     Dates: start: 20240411

REACTIONS (3)
  - Lumbar puncture [Fatal]
  - Pulmonary oedema [Unknown]
  - Off label use [Unknown]
